FAERS Safety Report 23706206 (Version 1)
Quarter: 2024Q2

REPORT INFORMATION
  Report Type: Spontaneous
  Country: US (occurrence: None)
  Receive Date: 20240403
  Receipt Date: 20240403
  Transmission Date: 20240716
  Serious: Yes (Other)
  Sender: FDA-Public Use
  Company Number: None

PATIENT
  Age: 43 Year
  Sex: Male
  Weight: 117 kg

DRUGS (1)
  1. NINJACOF [Suspect]
     Active Substance: CHLOPHEDIANOL\PYRILAMINE MALEATE
     Indication: Cough
     Dosage: 10 ML AT BEDTIME ORAL
     Route: 048
     Dates: start: 20240328, end: 20240402

REACTIONS (3)
  - Abnormal dreams [None]
  - Nightmare [None]
  - Screaming [None]

NARRATIVE: CASE EVENT DATE: 20240401
